FAERS Safety Report 17714746 (Version 3)
Quarter: 2020Q2

REPORT INFORMATION
  Report Type: Spontaneous
  Country: FR (occurrence: FR)
  Receive Date: 20200427
  Receipt Date: 20200518
  Transmission Date: 20200714
  Serious: Yes (Other)
  Sender: FDA-Public Use
  Company Number: FR-009507513-2004FRA006383

PATIENT
  Age: 10 Week
  Sex: Male

DRUGS (8)
  1. VORICONAZOLE. [Suspect]
     Active Substance: VORICONAZOLE
     Dosage: 32 MILLIGRAM/KILOGRAM, DAILY
     Route: 042
  2. CANCIDAS [Suspect]
     Active Substance: CASPOFUNGIN ACETATE
     Indication: CEREBRAL ASPERGILLOSIS
     Dosage: 27.5 MILLIGRAM, DAILY
     Route: 042
     Dates: start: 20200225
  3. VORICONAZOLE. [Suspect]
     Active Substance: VORICONAZOLE
     Indication: BRONCHOPULMONARY ASPERGILLOSIS
     Dosage: 20 MILLIGRAM/KILOGRAM, DAILY
     Route: 042
  4. INEXIUM (ESOMEPRAZOLE MAGNESIUM) [Concomitant]
     Active Substance: ESOMEPRAZOLE MAGNESIUM
     Indication: PRODUCT USED FOR UNKNOWN INDICATION
     Dosage: 5 MILLIGRAM, DAILY
     Route: 048
  5. CANCIDAS [Suspect]
     Active Substance: CASPOFUNGIN ACETATE
     Indication: BRONCHOPULMONARY ASPERGILLOSIS
     Dosage: 100 MILLIGRAM/SQ. METER, DAILY
     Route: 042
     Dates: start: 20200225
  6. VORICONAZOLE. [Suspect]
     Active Substance: VORICONAZOLE
     Indication: CEREBRAL ASPERGILLOSIS
     Dosage: 8 MILLIGRAM/KILOGRAM, TWO TIMES A DAY
     Route: 042
     Dates: start: 20200224, end: 20200310
  7. VORICONAZOLE. [Suspect]
     Active Substance: VORICONAZOLE
     Dosage: 100 MILLIGRAM, TWO TIMES A DAY (42 MG/KG/DAY)
     Route: 042
     Dates: start: 20200317
  8. VORICONAZOLE. [Suspect]
     Active Substance: VORICONAZOLE
     Dosage: 80 MILLIGRAM, TWO TIMES A DAY
     Route: 042
     Dates: start: 20200311, end: 20200316

REACTIONS (3)
  - Hepatocellular injury [Recovered/Resolved]
  - Cholestasis [Recovering/Resolving]
  - Product use issue [Unknown]

NARRATIVE: CASE EVENT DATE: 20200327
